FAERS Safety Report 8790203 (Version 1)
Quarter: 2012Q4

REPORT INFORMATION
  Report Type: 
  Country: US (occurrence: US)
  Receive Date: 20120917
  Receipt Date: 20120917
  Transmission Date: 20130627
  Serious: No
  Sender: FDA-Public Use
  Company Number: US-B.I. PHARMACEUTICALS,INC./RIDGEFIELD-2012-BP-22225BP

PATIENT
  Sex: Male

DRUGS (2)
  1. PRADAXA [Suspect]
     Indication: PULMONARY EMBOLISM
     Dosage: 150 mg
     Route: 048
     Dates: start: 20110624, end: 20120630
  2. PRADAXA [Suspect]
     Dosage: 75 mg
     Route: 048
     Dates: start: 20120815, end: 20120820

REACTIONS (5)
  - Testicular pain [Recovered/Resolved]
  - Testicular disorder [Recovered/Resolved]
  - Testicular pain [Recovered/Resolved]
  - Pelvic pain [Unknown]
  - Back pain [Unknown]
